FAERS Safety Report 4726372-6 (Version None)
Quarter: 2005Q3

REPORT INFORMATION
  Report Type: 
  Country: None (occurrence: None)
  Receive Date: 20050727
  Receipt Date: 20050712
  Transmission Date: 20060218
  Serious: Yes (Hospitalization)
  Sender: FDA-Public Use
  Company Number: 2005-UK-01259UK

PATIENT
  Age: 3 Year
  Sex: Female
  Weight: 14 kg

DRUGS (12)
  1. MORPHINE SULFATE [Suspect]
     Indication: MUCOSAL INFLAMMATION
     Dosage: 4 MG (NR, 2-4 TABLETS), PO
     Route: 048
     Dates: start: 20050614, end: 20050615
  2. MORPHINE SULFATE [Suspect]
     Indication: PAIN
     Dosage: 4 MG (NR, 2-4 TABLETS), PO
     Route: 048
     Dates: start: 20050614, end: 20050615
  3. AQUEOUS CREAM BP [Suspect]
     Indication: SWELLING FACE
     Dosage: NOT REPORTED
  4. MORPHINE [Suspect]
     Indication: MUCOSAL INFLAMMATION
     Dosage: 10 MG BD (NR, BD), PO
     Route: 048
     Dates: start: 20050615
  5. MORPHINE [Suspect]
     Indication: PAIN
     Dosage: 10 MG BD (NR, BD), PO
     Route: 048
     Dates: start: 20050615
  6. FLUCONAZOLE [Concomitant]
  7. CO-TRIMOXAZOLE (CO-TRIMOXAZOLE) [Concomitant]
  8. CHLORPHENIRAMINE TAB [Concomitant]
  9. CODEINE SUL TAB [Concomitant]
  10. MEROPENEM (MEROPENEM) [Concomitant]
  11. OMEPRAZOLE [Concomitant]
  12. TEICOPLANIN (TEICOPLANIN) [Concomitant]

REACTIONS (5)
  - ERYTHEMA [None]
  - OEDEMA [None]
  - PRURITUS [None]
  - RASH [None]
  - SKIN EXFOLIATION [None]
